FAERS Safety Report 5910303-7 (Version None)
Quarter: 2008Q4

REPORT INFORMATION
  Report Type: 
  Country: None (occurrence: None)
  Receive Date: 20081007
  Receipt Date: 20080929
  Transmission Date: 20090506
  Serious: Yes (Other)
  Sender: FDA-Public Use
  Company Number: US-BAYER-200813911BCC

PATIENT
  Age: 64 Year
  Sex: Male
  Weight: 100 kg

DRUGS (8)
  1. PHILLIPS' MILK OF MAGNESIA CHERRY [Suspect]
     Indication: CONSTIPATION
     Dosage: TOTAL DAILY DOSE: 30 ML  UNIT DOSE: 15 ML
     Route: 048
     Dates: start: 20080929
  2. INSULIN [Concomitant]
  3. VYTORIN [Concomitant]
  4. BENAZEPRIL HCTZ [Concomitant]
  5. PREVACID [Concomitant]
  6. MELOXICAM [Concomitant]
  7. LEFLUNOMIDE [Concomitant]
  8. EQUATE ASPIRIN [Concomitant]
     Dosage: UNIT DOSE: 81 MG

REACTIONS (1)
  - BLOOD GLUCOSE INCREASED [None]
